FAERS Safety Report 5082972-8 (Version None)
Quarter: 2006Q3

REPORT INFORMATION
  Report Type: 
  Country: None (occurrence: None)
  Receive Date: 20060720
  Receipt Date: 20060426
  Transmission Date: 20061208
  Serious: Yes (Hospitalization)
  Sender: FDA-Public Use
  Company Number: 2006058207

PATIENT
  Age: 70 Year
  Sex: Female
  Weight: 77.1115 kg

DRUGS (2)
  1. CELEBREX [Suspect]
     Indication: ARTHRALGIA
     Dosage: 200 MG (200 MG,1 IN 1 D)
     Dates: start: 20010514, end: 20020309
  2. CELEBREX [Suspect]
     Indication: BACK PAIN
     Dosage: 200 MG (200 MG,1 IN 1 D)
     Dates: start: 20010514, end: 20020309

REACTIONS (1)
  - MYOCARDIAL INFARCTION [None]
